FAERS Safety Report 5009585-8 (Version None)
Quarter: 2006Q2

REPORT INFORMATION
  Report Type: 
  Country: None (occurrence: None)
  Receive Date: 20060524
  Receipt Date: 20030910
  Transmission Date: 20061013
  Serious: Yes (Hospitalization)
  Sender: FDA-Public Use
  Company Number: PHNU2003DE03346

PATIENT
  Age: 59 Year
  Sex: Male

DRUGS (1)
  1. SANDIMMUNE [Suspect]
     Indication: HEART TRANSPLANT
     Dosage: 175 MG, BID
     Route: 048

REACTIONS (11)
  - DERMATITIS [None]
  - DRY SKIN [None]
  - HYPERTENSION [None]
  - HYPERURICAEMIA [None]
  - LYMPHADENOPATHY [None]
  - LYMPHOEDEMA [None]
  - OBESITY [None]
  - POSTOPERATIVE THORACIC PROCEDURE COMPLICATION [None]
  - SUPERINFECTION [None]
  - VENOUS INSUFFICIENCY [None]
  - XEROSIS [None]
